FAERS Safety Report 7389909-7 (Version None)
Quarter: 2011Q2

REPORT INFORMATION
  Report Type: 
  Country: None (occurrence: None)
  Receive Date: 20110401
  Receipt Date: 20110323
  Transmission Date: 20111010
  Serious: Yes (Hospitalization, Other)
  Sender: FDA-Public Use
  Company Number: US-ASTRAZENECA-2011SE09424

PATIENT
  Age: 66 Year
  Sex: Female

DRUGS (2)
  1. SEROQUEL XR [Suspect]
     Route: 048
  2. SEROQUEL XR [Suspect]
     Route: 048

REACTIONS (10)
  - MULTIPLE FRACTURES [None]
  - DRY MOUTH [None]
  - HOSPITALISATION [None]
  - THERAPEUTIC RESPONSE UNEXPECTED [None]
  - HUNGER [None]
  - NO ADVERSE EVENT [None]
  - CATARACT [None]
  - FALL [None]
  - CONDITION AGGRAVATED [None]
  - STRESS [None]
